FAERS Safety Report 8927902 (Version 1)
Quarter: 2012Q4

REPORT INFORMATION
  Report Type: Spontaneous
  Country: US (occurrence: None)
  Receive Date: 20121126
  Receipt Date: 20121126
  Transmission Date: 20130627
  Serious: Yes (Hospitalization)
  Sender: FDA-Public Use
  Company Number: None

PATIENT
  Age: 57 Year
  Sex: Male
  Weight: 113.2 kg

DRUGS (2)
  1. FOSINOPRIL [Suspect]
     Indication: HYPERTENSION
     Dosage: 40 MG EVERY DAY PO
     Route: 048
     Dates: start: 20070202, end: 20121104
  2. FOSINOPRIL [Suspect]
     Indication: DIABETES MELLITUS
     Dosage: 40 MG EVERY DAY PO
     Route: 048
     Dates: start: 20070202, end: 20121104

REACTIONS (3)
  - Pharyngeal oedema [None]
  - Dysphagia [None]
  - Angioedema [None]
